FAERS Safety Report 8012289-0 (Version None)
Quarter: 2011Q4

REPORT INFORMATION
  Report Type: 
  Country: None (occurrence: None)
  Receive Date: 20111228
  Receipt Date: 20111220
  Transmission Date: 20120403
  Serious: Yes (Death, Hospitalization)
  Sender: FDA-Public Use
  Company Number: US-CELGENEUS-163-20785-11120351

PATIENT
  Age: 68 Year
  Sex: Male
  Weight: 90.8 kg

DRUGS (18)
  1. PRIMAXIN [Concomitant]
     Route: 065
     Dates: start: 20111201
  2. METFORMIN HCL [Concomitant]
     Dosage: 500 MILLIGRAM
     Route: 048
  3. MULTI-VITAMINS [Concomitant]
     Route: 065
  4. FENOFIBRATE [Concomitant]
     Dosage: 200 MILLIGRAM
     Route: 048
  5. ZOLOFT [Concomitant]
     Dosage: 100 MILLIGRAM
     Route: 048
  6. VITAMIN C [Concomitant]
     Dosage: 500 MILLIGRAM
     Route: 048
  7. NAMENDA [Concomitant]
     Dosage: 10 MILLIGRAM
     Route: 048
  8. NULYTELY [Concomitant]
     Route: 065
  9. FLAGYL [Concomitant]
     Route: 065
     Dates: start: 20111201
  10. CRESTOR [Concomitant]
     Dosage: 10 MILLIGRAM
     Route: 048
  11. GLYBURIDE [Concomitant]
     Dosage: 5 MILLIGRAM
     Route: 048
  12. DEPAKOTE [Concomitant]
     Dosage: 100 MILLIGRAM
     Route: 065
  13. PROPRANOLOL [Concomitant]
     Dosage: 10 MILLIGRAM
     Route: 048
  14. INSULIN [Concomitant]
     Dosage: SLIDING SCALE
     Route: 065
  15. FERROUS SULFATE TAB [Concomitant]
     Dosage: 325
     Route: 048
  16. GALANTAMINE HYDROBROMIDE [Concomitant]
     Route: 065
     Dates: start: 20110101
  17. THALOMID [Suspect]
     Dosage: 150 MILLIGRAM
     Route: 048
     Dates: start: 20110927, end: 20111121
  18. SEROQUEL [Concomitant]
     Dosage: 50MG QAM, 200MG AT BEDTIME
     Route: 048

REACTIONS (5)
  - UPPER GASTROINTESTINAL HAEMORRHAGE [None]
  - SHOCK HAEMORRHAGIC [None]
  - PNEUMONIA [None]
  - HYPOXIC-ISCHAEMIC ENCEPHALOPATHY [None]
  - GASTROINTESTINAL HAEMORRHAGE [None]
